FAERS Safety Report 9352498 (Version 1)
Quarter: 2013Q2

REPORT INFORMATION
  Report Type: Spontaneous
  Country: BR (occurrence: BR)
  Receive Date: 20130617
  Receipt Date: 20130617
  Transmission Date: 20140414
  Serious: No
  Sender: FDA-Public Use
  Company Number: BR-B.I. PHARMACEUTICALS,INC./RIDGEFIELD-2013-BR-00705BR

PATIENT
  Age: 58 Year
  Sex: Male

DRUGS (4)
  1. TRAYENTA [Suspect]
     Indication: DIABETES MELLITUS
     Dosage: 5 MG
     Route: 048
     Dates: start: 20130521, end: 20130609
  2. DIAMICRON [Concomitant]
     Indication: DIABETES MELLITUS
  3. VASOPRIL [Concomitant]
     Indication: HYPERTENSION
  4. TENADREN [Concomitant]
     Indication: HYPERTENSION

REACTIONS (3)
  - Swelling face [Not Recovered/Not Resolved]
  - Eye swelling [Not Recovered/Not Resolved]
  - Hypersensitivity [Recovered/Resolved]
